FAERS Safety Report 7462237-7 (Version None)
Quarter: 2011Q2

REPORT INFORMATION
  Report Type: 
  Country: None (occurrence: None)
  Receive Date: 20110506
  Receipt Date: 20110406
  Transmission Date: 20111010
  Serious: Yes (Hospitalization, Other)
  Sender: FDA-Public Use
  Company Number: US-BAYER-2010-005066

PATIENT
  Age: 54 Year
  Sex: Male
  Weight: 77 kg

DRUGS (5)
  1. MAGNEVIST [Suspect]
     Indication: PAIN IN EXTREMITY
  2. MAGNEVIST [Suspect]
     Indication: ARTHROGRAM
     Dosage: MAGNEVIST DILUTED TO 1/200 IN SALINE
     Route: 014
     Dates: start: 20080827, end: 20080827
  3. CONTRAST MEDIA [Suspect]
     Indication: ARTHROGRAM
     Dosage: UNK
     Route: 014
     Dates: start: 20080827, end: 20080827
  4. MAGNEVIST [Suspect]
     Indication: MUSCULOSKELETAL PAIN
  5. SODIUM CHLORIDE [Suspect]
     Dosage: UNK
     Route: 014
     Dates: start: 20080827, end: 20080827

REACTIONS (12)
  - LOCALISED INFECTION [None]
  - MYOSITIS [None]
  - STAPHYLOCOCCAL BACTERAEMIA [None]
  - NEUROPATHY PERIPHERAL [None]
  - OFF LABEL USE [None]
  - PEAU D'ORANGE [None]
  - WOUND DEHISCENCE [None]
  - CARPAL TUNNEL SYNDROME [None]
  - ARTHRITIS BACTERIAL [None]
  - PAIN [None]
  - STAPHYLOCOCCAL SEPSIS [None]
  - OSTEOMYELITIS [None]
